FAERS Safety Report 8699580 (Version 3)
Quarter: 2012Q4

REPORT INFORMATION
  Report Type: Report from Study
  Country: JP (occurrence: JP)
  Receive Date: 20120802
  Receipt Date: 20121206
  Transmission Date: 20130627
  Serious: Yes (Life-Threatening)
  Sender: FDA-Public Use
  Company Number: JP-PFIZER INC-2012182998

PATIENT
  Age: 84 Year
  Sex: Female
  Weight: 40 kg

DRUGS (11)
  1. REVATIO [Suspect]
     Indication: PULMONARY ARTERIAL HYPERTENSION
     Dosage: 10 mg, 3x/day
     Dates: start: 20111201, end: 20111214
  2. REVATIO [Suspect]
     Dosage: 20 mg, 3x/day
     Dates: start: 20111215, end: 20120105
  3. BAYASPIRIN [Concomitant]
     Indication: THROMBOSIS PROPHYLAXIS
     Dosage: 100 mg, 1x/day
     Route: 048
  4. LASIX [Concomitant]
     Indication: CARDIAC FAILURE
     Dosage: 20 mg, 1x/day
     Route: 048
     Dates: start: 201101
  5. HALFDIGOXIN [Concomitant]
     Indication: CARDIAC FAILURE
     Dosage: 0.125 mg, 1x/day
     Route: 048
  6. BLOPRESS [Concomitant]
     Indication: HYPERTENSION
     Dosage: 4 mg, 1x/day
     Route: 048
  7. MEVALOTIN [Concomitant]
     Indication: HYPERLIPIDAEMIA
     Dosage: 5 mg, 1x/day
     Route: 048
  8. TAKEPRON [Concomitant]
     Indication: GASTRIC ULCER PROPHYLAXIS
     Dosage: 15 mg, 1x/day
     Route: 048
  9. ARTIST [Concomitant]
     Indication: HYPERTENSION
     Dosage: 1.25 mg, 3x/day
     Route: 048
  10. SIGMART [Concomitant]
     Indication: ANGINA PECTORIS
     Dosage: 2.5 mg, 3x/day
     Route: 048
  11. WARFARIN [Concomitant]
     Indication: THROMBOSIS PROPHYLAXIS
     Dosage: 2 mg, 1x/day
     Route: 048

REACTIONS (1)
  - Pneumonia [Recovered/Resolved]
